FAERS Safety Report 8770597 (Version 3)
Quarter: 2012Q4

REPORT INFORMATION
  Report Type: 
  Country: US (occurrence: US)
  Receive Date: 20120906
  Receipt Date: 20121223
  Transmission Date: 20130627
  Serious: No
  Sender: FDA-Public Use
  Company Number: US-009507513-1208USA003920

PATIENT
  Age: 54 None
  Sex: Male

DRUGS (5)
  1. VICTRELIS [Suspect]
     Indication: HEPATITIS C
     Dosage: four, 200 mg, tid
     Route: 048
     Dates: start: 20120802
  2. PEGASYS [Suspect]
     Indication: HEPATITIS C
     Dosage: 180 Microgram, qw
     Route: 058
     Dates: start: 20120622
  3. RIBASPHERE [Suspect]
     Indication: HEPATITIS C
     Dosage: 600 mg, bid
     Dates: start: 20120622
  4. OMEPRAZOLE [Concomitant]
     Dosage: 20 mg, qd
  5. HYDROCHLOROTHIAZIDE (+) LISINOPRIL [Concomitant]
     Dosage: 10mg/12.5 mg, qd
     Route: 048

REACTIONS (8)
  - Headache [Not Recovered/Not Resolved]
  - Increased appetite [Not Recovered/Not Resolved]
  - Initial insomnia [Not Recovered/Not Resolved]
  - Nausea [Not Recovered/Not Resolved]
  - Drug ineffective [Not Recovered/Not Resolved]
  - Poor quality sleep [Not Recovered/Not Resolved]
  - Red blood cell count decreased [Not Recovered/Not Resolved]
  - Depression [Unknown]
